FAERS Safety Report 26185267 (Version 1)
Quarter: 2025Q4

REPORT INFORMATION
  Report Type: Spontaneous
  Country: US (occurrence: US)
  Receive Date: 20251222
  Receipt Date: 20251222
  Transmission Date: 20260117
  Serious: Yes (Hospitalization, Other)
  Sender: Steriscience PTE
  Company Number: US-STERISCIENCE B.V.-2025-ST-001714

PATIENT
  Age: 76 Year
  Sex: Female

DRUGS (1)
  1. MEROPENEM [Suspect]
     Active Substance: MEROPENEM
     Indication: Serratia infection
     Dosage: 500 MILLIGRAM, QD
     Route: 065

REACTIONS (10)
  - Pneumonia [Unknown]
  - Septic shock [Unknown]
  - Acute respiratory failure [Unknown]
  - Renal tubular necrosis [Unknown]
  - Atrial fibrillation [Unknown]
  - Spinal stenosis [Unknown]
  - Urinary tract infection [Unknown]
  - Asthenia [Unknown]
  - Renal failure [Unknown]
  - Drug ineffective [Unknown]
